FAERS Safety Report 4630418-3 (Version None)
Quarter: 2005Q2

REPORT INFORMATION
  Report Type: 
  Country: None (occurrence: None)
  Receive Date: 20050406
  Receipt Date: 20050321
  Transmission Date: 20051028
  Serious: No
  Sender: FDA-Public Use
  Company Number: CA-SANOFI-SYNTHELABO-A01200501820

PATIENT
  Sex: Male

DRUGS (1)
  1. PLAVIX [Suspect]
     Dosage: ORAL
     Route: 048
     Dates: start: 20000101

REACTIONS (1)
  - PULMONARY THROMBOSIS [None]
